FAERS Safety Report 4444931-5 (Version None)
Quarter: 2004Q3

REPORT INFORMATION
  Report Type: 
  Country: None (occurrence: None)
  Receive Date: 20040903
  Receipt Date: 20040825
  Transmission Date: 20050211
  Serious: Yes (Hospitalization, Other)
  Sender: FDA-Public Use
  Company Number: 2004-08-1526

PATIENT
  Age: 32 Year
  Sex: Female

DRUGS (9)
  1. RINDERON (BETAMETHASONE SODIUM PHOSPHATE) OPHTHALMIC SOLUTION ^LIKE CE [Suspect]
     Dosage: 0.1 % TOP-OPHTHALMIC
     Route: 047
     Dates: start: 20030501
  2. PREDNISOLONE [Suspect]
     Indication: WEGENER'S GRANULOMATOSIS
     Dosage: SEE IMAGE
     Route: 048
     Dates: start: 20030722, end: 20030823
  3. PREDNISOLONE [Suspect]
     Indication: WEGENER'S GRANULOMATOSIS
     Dosage: SEE IMAGE
     Route: 048
     Dates: start: 20030824, end: 20030901
  4. PREDNISOLONE [Suspect]
     Indication: WEGENER'S GRANULOMATOSIS
     Dosage: SEE IMAGE
     Route: 048
     Dates: start: 20030902
  5. ENDOXAN [Concomitant]
  6. BROMFENAC SODIUM [Concomitant]
  7. LOXONIN [Concomitant]
  8. CEFZON [Concomitant]
  9. LEVOFLOXACIN [Concomitant]

REACTIONS (3)
  - DELIRIUM [None]
  - INSOMNIA [None]
  - WEGENER'S GRANULOMATOSIS [None]
